FAERS Safety Report 22272556 (Version 4)
Quarter: 2023Q4

REPORT INFORMATION
  Report Type: Spontaneous
  Country: PT (occurrence: PT)
  Receive Date: 20230502
  Receipt Date: 20231104
  Transmission Date: 20240110
  Serious: Yes (Other)
  Sender: FDA-Public Use
  Company Number: PT-ROCHE-3329125

PATIENT
  Age: 75 Year
  Sex: Female
  Weight: 69 kg

DRUGS (8)
  1. DOXORUBICIN [Suspect]
     Active Substance: DOXORUBICIN
     Indication: Product used for unknown indication
     Dosage: 1ST CYCLE TO 6TH LINE: 2009 TO 20/FEB/2023
     Route: 065
  2. GEMCITABINE [Suspect]
     Active Substance: GEMCITABINE
     Indication: Product used for unknown indication
     Dosage: 1ST CYCLE TO 6TH LINE: 2009 TO 20/FEB/2023
     Route: 065
  3. OXALIPLATIN [Suspect]
     Active Substance: OXALIPLATIN
     Indication: Product used for unknown indication
     Dosage: 1ST CYCLE TO 6TH LINE: 2009 TO 20/FEB/2023
     Route: 065
     Dates: start: 20221101, end: 20230220
  4. BENDAMUSTINE [Suspect]
     Active Substance: BENDAMUSTINE
     Indication: Product used for unknown indication
     Dosage: 1ST CYCLE TO 6TH LINE: 2009 TO 20/FEB/2023
     Route: 065
     Dates: start: 201906, end: 201910
  5. CYCLOPHOSPHAMIDE [Suspect]
     Active Substance: CYCLOPHOSPHAMIDE
     Indication: Product used for unknown indication
     Dosage: 1ST TO 6 TH CYCLE: 2009 TO 20/FEB/2023
     Route: 065
  6. PREDNISONE [Suspect]
     Active Substance: PREDNISONE
     Indication: Product used for unknown indication
     Dosage: 1ST CYCLE TO 6TH LINE: 2009 TO 20/FEB/2023
     Route: 065
  7. RITUXIMAB [Suspect]
     Active Substance: RITUXIMAB
     Indication: Product used for unknown indication
     Dosage: 1ST CYCLE TO 6TH LINE: 2009 TO 20/FEB/2023
     Route: 065
     Dates: start: 20130401, end: 20130501
  8. VINCRISTINE [Suspect]
     Active Substance: VINCRISTINE
     Indication: Product used for unknown indication
     Dosage: 1ST CYCLE TO 6TH LINE: 2009 TO 20/FEB/2023
     Route: 065

REACTIONS (6)
  - Lymphoma [Unknown]
  - Metastasis [Unknown]
  - Neoplasm malignant [Unknown]
  - Splenic marginal zone lymphoma [Unknown]
  - Impaired work ability [Unknown]
  - Ill-defined disorder [Unknown]
